FAERS Safety Report 25582458 (Version 2)
Quarter: 2025Q3

REPORT INFORMATION
  Report Type: Spontaneous
  Country: US (occurrence: US)
  Receive Date: 20250720
  Receipt Date: 20250827
  Transmission Date: 20251021
  Serious: Yes (Other)
  Sender: MERCK SHARP & DOHME LLC
  Company Number: US-009507513-2309011

PATIENT
  Age: 86 Year
  Sex: Female
  Weight: 60.328 kg

DRUGS (16)
  1. KEYTRUDA [Suspect]
     Active Substance: PEMBROLIZUMAB
     Indication: Endometrial cancer
     Dates: start: 20240530, end: 20250317
  2. KEYTRUDA [Suspect]
     Active Substance: PEMBROLIZUMAB
     Indication: Endometrial cancer
     Dates: start: 20250422, end: 20250603
  3. KEYTRUDA [Suspect]
     Active Substance: PEMBROLIZUMAB
     Indication: Endometrial cancer
     Dates: start: 20250723
  4. LENVATINIB [Suspect]
     Active Substance: LENVATINIB
     Indication: Endometrial cancer
     Route: 048
     Dates: start: 20240724, end: 20250603
  5. LENVATINIB [Suspect]
     Active Substance: LENVATINIB
     Indication: Endometrial cancer
     Route: 048
     Dates: start: 20250725
  6. ASPIRIN [Concomitant]
     Active Substance: ASPIRIN
     Route: 048
  7. DULCOLAX (BISACODYL) [Concomitant]
     Active Substance: BISACODYL
     Route: 048
  8. CELEBREX [Concomitant]
     Active Substance: CELECOXIB
     Route: 048
  9. cholecalciferol (vitamin D-3) [Concomitant]
     Route: 048
  10. glucosamine-chondroitin JOINT FLEX [Concomitant]
     Route: 048
  11. LUTEIN [Concomitant]
     Active Substance: LUTEIN
     Route: 048
  12. LYSINE [Concomitant]
     Active Substance: LYSINE
     Route: 048
  13. CITRUCEL [Concomitant]
     Active Substance: METHYLCELLULOSE (4000 CPS)
     Indication: Constipation
     Route: 048
  14. multiple vitamins-minerals (MULTIVITAMIN, OCUVITE) [Concomitant]
     Route: 048
  15. senna (SENOKOT) [Concomitant]
     Route: 048
  16. triamcinolone acetonide (KENALOG, ARISTOCORT) [Concomitant]
     Route: 061
     Dates: start: 20241205

REACTIONS (1)
  - Immune-mediated mucositis [Recovered/Resolved]

NARRATIVE: CASE EVENT DATE: 20250603
